FAERS Safety Report 10175401 (Version 1)
Quarter: 2014Q2

REPORT INFORMATION
  Report Type: Spontaneous
  Country: US (occurrence: US)
  Receive Date: 20140515
  Receipt Date: 20140515
  Transmission Date: 20141212
  Serious: Yes (Death, Other)
  Sender: FDA-Public Use
  Company Number: US-BAXTER-2014BAX025185

PATIENT
  Sex: 0

DRUGS (1)
  1. CEFAZOLIN INJECTION [Suspect]
     Indication: ANTIBIOTIC PROPHYLAXIS
     Route: 065

REACTIONS (1)
  - Disease complication [Fatal]
